FAERS Safety Report 12008314 (Version 6)
Quarter: 2016Q3

REPORT INFORMATION
  Report Type: Spontaneous
  Country: KR (occurrence: KR)
  Receive Date: 20160205
  Receipt Date: 20160802
  Transmission Date: 20161109
  Serious: Yes (Death, Hospitalization, Other)
  Sender: FDA-Public Use
  Company Number: KR-009507513-1602KOR002403

PATIENT
  Age: 61 Year
  Sex: Male
  Weight: 49 kg

DRUGS (16)
  1. DEXAMETHASONE SODIUM PHOSPHATE. [Concomitant]
     Active Substance: DEXAMETHASONE SODIUM PHOSPHATE
     Indication: VOMITING
     Dosage: 10 MG, ^FREQUENCY 1^
     Route: 042
     Dates: start: 20160120, end: 20160120
  2. DEXAMETHASONE SODIUM PHOSPHATE. [Concomitant]
     Active Substance: DEXAMETHASONE SODIUM PHOSPHATE
     Dosage: 8 MG, ^FREQUENCY 1^
     Route: 042
     Dates: start: 20160120, end: 20160120
  3. TAXOTERE [Concomitant]
     Active Substance: DOCETAXEL
     Indication: CHEMOTHERAPY
     Dosage: 25 MG, ^FREQUENCY: 1^, CYCLE 1
     Route: 042
     Dates: start: 20160120, end: 20160120
  4. CISPLATIN. [Concomitant]
     Active Substance: CISPLATIN
     Dosage: 45 MG, ^FREQUENCY 1^, CYCLE 1
     Route: 042
     Dates: start: 20160122, end: 20160122
  5. EMEND (FOSAPREPITANT DIMEGLUMINE) [Suspect]
     Active Substance: FOSAPREPITANT DIMEGLUMINE
     Indication: PROPHYLAXIS OF NAUSEA AND VOMITING
     Dosage: 150 MG, ONCE
     Route: 042
     Dates: start: 20160121, end: 20160121
  6. CISPLATIN. [Concomitant]
     Active Substance: CISPLATIN
     Indication: CHEMOTHERAPY
     Dosage: 50 MG, ^FREQUENCY: 1^, CYCLE 1
     Route: 042
     Dates: start: 20160121, end: 20160121
  7. STILLEN [Concomitant]
     Indication: GASTRITIS PROPHYLAXIS
     Dosage: 60 MG, (FREQUENCY 3)
     Route: 048
     Dates: start: 20160114
  8. ALOXI [Concomitant]
     Active Substance: PALONOSETRON HYDROCHLORIDE
     Indication: VOMITING
     Dosage: 5 ML, ^FREQUENCY 1^
     Route: 042
     Dates: start: 20160121, end: 20160121
  9. MANNITOL. [Concomitant]
     Active Substance: MANNITOL
     Indication: PROPHYLAXIS
     Dosage: 100 ML, (FREQUENCY 1)
     Route: 042
     Dates: start: 20160121, end: 20160121
  10. DIABEX [Concomitant]
     Active Substance: METFORMIN HYDROCHLORIDE
     Indication: DIABETES MELLITUS
     Dosage: 500 MG, (FREQUENCY 2)
     Route: 048
     Dates: start: 20151230
  11. LASIX [Concomitant]
     Active Substance: FUROSEMIDE
     Indication: PROPHYLAXIS
     Dosage: 20 MG, (FREQUENCY 1)
     Route: 042
     Dates: start: 20160121, end: 20160121
  12. FLUOROURACIL. [Concomitant]
     Active Substance: FLUOROURACIL
     Indication: CHEMOTHERAPY
     Dosage: 1800 MG, QD, CYCLE 1
     Route: 042
     Dates: start: 20160120, end: 20160122
  13. CISPLATIN. [Concomitant]
     Active Substance: CISPLATIN
     Indication: CHEMOTHERAPY
     Dosage: 25 MG, ^FREQUENCY 1^, CYCLE 1
     Route: 042
     Dates: start: 20160121, end: 20160121
  14. DEXAMETHASONE SODIUM PHOSPHATE. [Concomitant]
     Active Substance: DEXAMETHASONE SODIUM PHOSPHATE
     Dosage: 8 MG, ^FREQUENCY 2^
     Route: 042
     Dates: start: 20160121, end: 20160121
  15. TAXOTERE [Concomitant]
     Active Substance: DOCETAXEL
     Indication: CHEMOTHERAPY
     Dosage: 80 MG, ^FREQUENCY: 1^, CYCLE 1
     Route: 042
     Dates: start: 20160120, end: 20160120
  16. SOLETON [Concomitant]
     Active Substance: ZALTOPROFEN
     Indication: PAIN
     Dosage: 80 MG, (FREQUENCY 3)
     Route: 048
     Dates: start: 20160103

REACTIONS (1)
  - Neutropenia [Fatal]

NARRATIVE: CASE EVENT DATE: 20160127
